FAERS Safety Report 6156643-0 (Version None)
Quarter: 2009Q2

REPORT INFORMATION
  Report Type: 
  Country: None (occurrence: None)
  Receive Date: 20090416
  Receipt Date: 20090407
  Transmission Date: 20091009
  Serious: Yes (Life-Threatening, Other)
  Sender: FDA-Public Use
  Company Number: JP-BRISTOL-MYERS SQUIBB COMPANY-14554075

PATIENT
  Age: 23 Year
  Sex: Male

DRUGS (2)
  1. FUNGIZONE [Suspect]
     Indication: GRANULOMA
     Route: 065
  2. INTERFERON GAMMA [Concomitant]

REACTIONS (1)
  - RENAL FAILURE [None]
